FAERS Safety Report 8216716-5 (Version None)
Quarter: 2012Q1

REPORT INFORMATION
  Report Type: 
  Country: None (occurrence: None)
  Receive Date: 20120316
  Receipt Date: 20120305
  Transmission Date: 20120608
  Serious: Yes (Hospitalization)
  Sender: FDA-Public Use
  Company Number: AU-ROCHE-1021663

PATIENT
  Sex: Male
  Weight: 83 kg

DRUGS (1)
  1. VEMURAFENIB [Suspect]
     Indication: METASTATIC MALIGNANT MELANOMA
     Dosage: DATE OF LAST DOSE PRIOR TO SAE : 29/DEC/2011
     Route: 048
     Dates: start: 20111201

REACTIONS (4)
  - TACHYCARDIA [None]
  - PYREXIA [None]
  - PERICARDITIS [None]
  - ATRIAL FLUTTER [None]
